FAERS Safety Report 5728230-7 (Version None)
Quarter: 2008Q2

REPORT INFORMATION
  Report Type: 
  Country: None (occurrence: None)
  Receive Date: 20080505
  Receipt Date: 20080505
  Transmission Date: 20081010
  Serious: Yes (Other)
  Sender: FDA-Public Use
  Company Number: None

PATIENT
  Age: 11 Month
  Sex: Female
  Weight: 3.1752 kg

DRUGS (1)
  1. IMMUNE GLOBULIN (HUMAN) [Suspect]

REACTIONS (1)
  - EXPIRED DRUG ADMINISTERED [None]
